FAERS Safety Report 5380972-1 (Version None)
Quarter: 2007Q3

REPORT INFORMATION
  Report Type: 
  Country: None (occurrence: None)
  Receive Date: 20070702
  Receipt Date: 20060727
  Transmission Date: 20080115
  Serious: Yes (Hospitalization)
  Sender: FDA-Public Use
  Company Number: SPV1-2006-00320

PATIENT
  Age: 61 Year
  Sex: Male

DRUGS (4)
  1. PENTASA [Suspect]
     Indication: COLITIS ULCERATIVE
     Dosage: 750 MG, 3XDAY:TID, ORAL, 750 MG, 3XDAY:TID
     Route: 048
     Dates: start: 20040701, end: 20040726
  2. PENTASA [Suspect]
     Indication: COLITIS ULCERATIVE
     Dosage: 750 MG, 3XDAY:TID, ORAL, 750 MG, 3XDAY:TID
     Route: 048
     Dates: start: 20040816, end: 20040819
  3. PENTASA [Suspect]
     Indication: COLITIS ULCERATIVE
     Dosage: 750 MG, 3XDAY:TID, ORAL, 750 MG, 3XDAY:TID
     Route: 048
     Dates: start: 20040825, end: 20040825
  4. PENTASA [Suspect]
     Indication: COLITIS ULCERATIVE
     Dosage: 750 MG, 3XDAY:TID, ORAL, 750 MG, 3XDAY:TID
     Route: 048
     Dates: start: 20041019

REACTIONS (2)
  - NAUSEA [None]
  - VOMITING [None]
